FAERS Safety Report 12209382 (Version 1)
Quarter: 2016Q1

REPORT INFORMATION
  Report Type: Spontaneous
  Country: BR (occurrence: BR)
  Receive Date: 20160324
  Receipt Date: 20160324
  Transmission Date: 20160526
  Serious: Yes (Hospitalization)
  Sender: FDA-Public Use
  Company Number: BR-BAUSCH-BL-2016-006923

PATIENT
  Sex: Female
  Weight: 70 kg

DRUGS (2)
  1. MESTINON [Suspect]
     Active Substance: PYRIDOSTIGMINE BROMIDE
     Indication: MYASTHENIA GRAVIS
     Dosage: 5 OR 6 TABLETS PER DAY
     Route: 048
     Dates: start: 1998
  2. MESTINON [Suspect]
     Active Substance: PYRIDOSTIGMINE BROMIDE
     Dosage: 1 E ? TABLETS PER DAY, ? IN THE MORNING, ? IN THE AFTERNOON AND ? AT NIGHT
     Route: 048

REACTIONS (2)
  - Thymectomy [Unknown]
  - Muscular weakness [Unknown]

NARRATIVE: CASE EVENT DATE: 2001
